FAERS Safety Report 5070211-3 (Version None)
Quarter: 2006Q3

REPORT INFORMATION
  Report Type: 
  Country: None (occurrence: None)
  Receive Date: 20060731
  Receipt Date: 20060720
  Transmission Date: 20061208
  Serious: Yes (Other)
  Sender: FDA-Public Use
  Company Number: 2006P1000368

PATIENT
  Age: 68 Year
  Sex: Male
  Weight: 82 kg

DRUGS (5)
  1. RETEPLASE (RETEPLASE) [Suspect]
     Indication: ACUTE MYOCARDIAL INFARCTION
     Dosage: 5 IU ; X2; IV
     Route: 042
     Dates: start: 20060418, end: 20060418
  2. REOPRO [Suspect]
     Dosage: 10.2 ML; X1; IV, 48 ML;
     Route: 042
     Dates: start: 20060418, end: 20060418
  3. REOPRO [Suspect]
     Dosage: 10.2 ML; X1; IV, 48 ML;
     Route: 042
     Dates: start: 20060418, end: 20060418
  4. HEPARIN [Concomitant]
  5. HEPARIN [Concomitant]

REACTIONS (3)
  - CORONARY ARTERY DISEASE [None]
  - HEART RATE DECREASED [None]
  - THROMBOSIS [None]
